FAERS Safety Report 7117646-2 (Version None)
Quarter: 2010Q4

REPORT INFORMATION
  Report Type: 
  Country: None (occurrence: None)
  Receive Date: 20101122
  Receipt Date: 20101110
  Transmission Date: 20110411
  Serious: Yes (Hospitalization)
  Sender: FDA-Public Use
  Company Number: US-AMGEN-USASP2010004643

PATIENT

DRUGS (10)
  1. PROCRIT [Suspect]
     Indication: PRODUCT USED FOR UNKNOWN INDICATION
     Dosage: 40000 IU, QWK
     Route: 058
     Dates: start: 20100310, end: 20100414
  2. PROCRIT [Suspect]
     Dosage: 40000 IU, QWK
     Route: 058
     Dates: start: 20100527, end: 20100101
  3. RIBAVIRIN [Concomitant]
     Indication: LIVER TRANSPLANT
     Dosage: UNK UNK, QD
     Dates: start: 20090801
  4. INTERFERON [Concomitant]
     Indication: LIVER TRANSPLANT
     Dosage: 16 A?G, QD
     Route: 058
     Dates: start: 20090801
  5. PROGRAF [Concomitant]
     Dosage: 1 MG, UNK
  6. ZOLOFT [Concomitant]
     Indication: DEPRESSION
     Dosage: 50 MG, QD
     Route: 048
  7. SPIROLACTON [Concomitant]
     Indication: SWELLING
     Dosage: 50 MG, BID
     Route: 048
  8. LASIX [Concomitant]
     Indication: SWELLING
     Dosage: 40 MG, QD
     Route: 048
  9. MYFORTIC                           /01275101/ [Concomitant]
     Dosage: UNK
     Dates: end: 20101001
  10. OXYCODONE HCL [Concomitant]
     Indication: PAIN
     Dosage: 5 MG, QD

REACTIONS (1)
  - INJECTION SITE ULCER [None]
